FAERS Safety Report 22659850 (Version 2)
Quarter: 2024Q1

REPORT INFORMATION
  Report Type: Spontaneous
  Country: US (occurrence: US)
  Receive Date: 20230630
  Receipt Date: 20240207
  Transmission Date: 20240410
  Serious: Yes (Hospitalization)
  Sender: FDA-Public Use
  Company Number: US-TRAVERE-2023TVT00262

PATIENT
  Age: 55 Year
  Sex: Male

DRUGS (27)
  1. FILSPARI [Suspect]
     Active Substance: SPARSENTAN
     Indication: IgA nephropathy
     Route: 048
     Dates: start: 202305
  2. FILSPARI [Suspect]
     Active Substance: SPARSENTAN
     Route: 048
     Dates: start: 202307
  3. ALBUTEROL [Concomitant]
     Active Substance: ALBUTEROL
  4. ZYLOPRIM [Concomitant]
     Active Substance: ALLOPURINOL
  5. XANAX [Concomitant]
     Active Substance: ALPRAZOLAM
  6. NORVASC [Concomitant]
     Active Substance: AMLODIPINE BESYLATE
  7. ASPIRIN [Concomitant]
     Active Substance: ASPIRIN
  8. ASTELIN [Concomitant]
     Active Substance: AZELASTINE HYDROCHLORIDE
  9. SYMBICORT [Concomitant]
     Active Substance: BUDESONIDE\FORMOTEROL FUMARATE DIHYDRATE
  10. COREG [Concomitant]
     Active Substance: CARVEDILOL
  11. CYANOCOBALAMIN [Concomitant]
     Active Substance: CYANOCOBALAMIN
  12. DAPAGLIFLOZIN [Concomitant]
     Active Substance: DAPAGLIFLOZIN
  13. ERGOCALCIFEROL [Concomitant]
     Active Substance: ERGOCALCIFEROL
  14. ZETIA [Concomitant]
     Active Substance: EZETIMIBE
  15. TRILIPIX [Concomitant]
     Active Substance: FENOFIBRIC ACID
  16. LASIX [Concomitant]
     Active Substance: FUROSEMIDE
  17. VISTARIL [Concomitant]
     Active Substance: HYDROXYZINE PAMOATE
  18. METFORMIN [Concomitant]
     Active Substance: METFORMIN HYDROCHLORIDE
  19. REGLAN [Concomitant]
     Active Substance: METOCLOPRAMIDE HYDROCHLORIDE
  20. ZAROXOLYN [Concomitant]
     Active Substance: METOLAZONE
  21. VITAMINS [Concomitant]
     Active Substance: VITAMINS
  22. PRILOSEC [Concomitant]
     Active Substance: OMEPRAZOLE MAGNESIUM
  23. ZOFRAN [Concomitant]
     Active Substance: ONDANSETRON HYDROCHLORIDE
  24. POTASSIUM ORAL [Concomitant]
  25. LYRICA [Concomitant]
     Active Substance: PREGABALIN
  26. ROSUVASTATIN CALCIUM [Concomitant]
     Active Substance: ROSUVASTATIN CALCIUM
  27. AMBIEN CR [Concomitant]
     Active Substance: ZOLPIDEM TARTRATE

REACTIONS (3)
  - COVID-19 [Recovered/Resolved]
  - Acute kidney injury [Unknown]
  - Acute respiratory failure [Unknown]

NARRATIVE: CASE EVENT DATE: 20230619
